FAERS Safety Report 4373002-1 (Version None)
Quarter: 2004Q2

REPORT INFORMATION
  Report Type: 
  Country: None (occurrence: None)
  Receive Date: 20040608
  Receipt Date: 20040115
  Transmission Date: 20050107
  Serious: Yes (Hospitalization)
  Sender: FDA-Public Use
  Company Number: DE-ROCHE-356200

PATIENT
  Age: 48 Year
  Sex: Male

DRUGS (36)
  1. MYCOPHENOLATE MOFETIL [Suspect]
     Route: 065
     Dates: start: 20031220, end: 20031229
  2. MYCOPHENOLATE MOFETIL [Suspect]
     Route: 065
     Dates: start: 20031230, end: 20040114
  3. MYCOPHENOLATE MOFETIL [Suspect]
     Route: 065
     Dates: start: 20040115, end: 20040130
  4. MYCOPHENOLATE MOFETIL [Suspect]
     Route: 065
     Dates: start: 20040131, end: 20040202
  5. CYCLOSPORINE [Suspect]
     Route: 065
     Dates: start: 20031220, end: 20031220
  6. CYCLOSPORINE [Suspect]
     Route: 065
     Dates: start: 20031221, end: 20031221
  7. CYCLOSPORINE [Suspect]
     Route: 065
     Dates: start: 20031222, end: 20031222
  8. CYCLOSPORINE [Suspect]
     Route: 065
     Dates: start: 20031223, end: 20031223
  9. CYCLOSPORINE [Suspect]
     Route: 065
     Dates: start: 20031224, end: 20031228
  10. CYCLOSPORINE [Suspect]
     Route: 065
     Dates: start: 20031229, end: 20040106
  11. CYCLOSPORINE [Suspect]
     Route: 065
     Dates: start: 20040107
  12. URBASON [Suspect]
     Route: 065
     Dates: start: 20031220, end: 20031220
  13. URBASON [Suspect]
     Route: 065
     Dates: start: 20031221, end: 20031221
  14. URBASON [Suspect]
     Route: 065
     Dates: start: 20031222, end: 20031222
  15. URBASON [Suspect]
     Route: 065
     Dates: start: 20031223, end: 20031223
  16. URBASON [Suspect]
     Route: 065
     Dates: start: 20031224, end: 20031224
  17. URBASON [Suspect]
     Route: 065
     Dates: start: 20031225, end: 20031225
  18. URBASON [Suspect]
     Route: 065
     Dates: start: 20031226, end: 20031226
  19. URBASON [Suspect]
     Route: 065
     Dates: start: 20031227, end: 20031227
  20. URBASON [Suspect]
     Route: 065
     Dates: start: 20031228, end: 20031228
  21. URBASON [Suspect]
     Route: 065
     Dates: start: 20031229, end: 20040329
  22. URBASON [Suspect]
     Route: 065
     Dates: start: 20040330, end: 20040426
  23. URBASON [Suspect]
     Route: 065
     Dates: start: 20040427
  24. DILTIAZEM RETARD [Concomitant]
     Dates: start: 20031219
  25. DOXAZOSINMESILAT [Concomitant]
     Dates: start: 20031221
  26. METOPROLOL SUCCINATE [Concomitant]
     Dates: start: 20031221, end: 20031221
  27. CLONIDIN [Concomitant]
     Dates: start: 20031220
  28. NIFEDIPINE [Concomitant]
     Dates: start: 20031220, end: 20031220
  29. CYTOMEGALIE-IMMUNGLOBULIN [Concomitant]
     Dates: start: 20031220, end: 20031220
  30. COTRIMOXAZOL [Concomitant]
     Dates: start: 20031220
  31. CEFTRIAXON [Concomitant]
     Dates: start: 20031220, end: 20031220
  32. GANCICLOVIR [Concomitant]
     Dates: start: 20031221
  33. CEFOTAXIM [Concomitant]
     Dates: start: 20031230, end: 20040105
  34. LEVOFLOXACIN [Concomitant]
     Dates: start: 20040104
  35. IMIPENEM [Concomitant]
     Dates: start: 20040106
  36. EPOGEN [Concomitant]
     Dates: start: 20040103

REACTIONS (8)
  - BLOOD CREATININE INCREASED [None]
  - BLOOD UREA INCREASED [None]
  - HYPERKALAEMIA [None]
  - LYMPHOCELE [None]
  - PNEUMONIA [None]
  - URINARY TRACT INFECTION [None]
  - URINOMA [None]
  - VOMITING [None]
